FAERS Safety Report 5229962-X (Version None)
Quarter: 2007Q1

REPORT INFORMATION
  Report Type: 
  Country: None (occurrence: None)
  Receive Date: 20070206
  Receipt Date: 20060801
  Transmission Date: 20070707
  Serious: No
  Sender: FDA-Public Use
  Company Number: US-GLAXOSMITHKLINE-A0613614A

PATIENT
  Age: 63 Year
  Sex: Male

DRUGS (1)
  1. PAXIL [Suspect]
     Indication: ANXIETY
     Dosage: 20MG SEE DOSAGE TEXT
     Route: 048

REACTIONS (8)
  - DISTURBANCE IN ATTENTION [None]
  - FEELING ABNORMAL [None]
  - IRRITABILITY [None]
  - MENTAL IMPAIRMENT [None]
  - PARAESTHESIA [None]
  - SENSORY DISTURBANCE [None]
  - SOMNOLENCE [None]
  - VISION BLURRED [None]
